FAERS Safety Report 24612190 (Version 1)
Quarter: 2024Q4

REPORT INFORMATION
  Report Type: Spontaneous
  Country: US (occurrence: US)
  Receive Date: 20241113
  Receipt Date: 20241113
  Transmission Date: 20250114
  Serious: Yes (Other)
  Sender: LUOXIN AUROVITAS PHARMA(CHENGDU)
  Company Number: US-LUOXIN-LUX-2024-US-LIT-00064

PATIENT
  Age: 66 Year
  Sex: Female

DRUGS (8)
  1. ALBUTEROL SULFATE [Suspect]
     Active Substance: ALBUTEROL SULFATE
     Indication: Hyperkalaemia
     Route: 065
  2. CITRIC ACID MONOHYDRATE\SODIUM CITRATE [Suspect]
     Active Substance: CITRIC ACID MONOHYDRATE\SODIUM CITRATE
     Indication: Hyperkalaemia
     Route: 065
  3. FUROSEMIDE [Suspect]
     Active Substance: FUROSEMIDE
     Indication: Hyperkalaemia
     Route: 042
  4. INSULIN NOS [Suspect]
     Active Substance: INSULIN NOS
     Indication: Hyperkalaemia
     Dosage: 10 UNITS OF INSULIN ALONG WITH GLUCOSE
     Route: 065
  5. PATIROMER [Suspect]
     Active Substance: PATIROMER
     Indication: Hyperkalaemia
     Route: 065
  6. PATIROMER [Suspect]
     Active Substance: PATIROMER
     Dosage: DOUBLED
     Route: 065
  7. SODIUM BICARBONATE [Suspect]
     Active Substance: SODIUM BICARBONATE
     Indication: Hyperkalaemia
     Route: 042
  8. LACTULOSE [Concomitant]
     Active Substance: LACTULOSE
     Indication: Hyperkalaemia
     Route: 065

REACTIONS (1)
  - Drug ineffective [Unknown]
